FAERS Safety Report 22533371 (Version 1)
Quarter: 2023Q2

REPORT INFORMATION
  Report Type: Spontaneous
  Country: GB (occurrence: GB)
  Receive Date: 20230608
  Receipt Date: 20230608
  Transmission Date: 20230722
  Serious: Yes (Other)
  Sender: FDA-Public Use
  Company Number: None

PATIENT
  Sex: Female

DRUGS (1)
  1. LEVOTHYROXINE [Suspect]
     Active Substance: LEVOTHYROXINE
     Indication: Product used for unknown indication

REACTIONS (10)
  - Palpitations [Recovered/Resolved]
  - Memory impairment [Recovered/Resolved]
  - Anger [Recovered/Resolved]
  - Weight increased [Recovering/Resolving]
  - Fatigue [Recovering/Resolving]
  - Alopecia [Recovered/Resolved]
  - Insomnia [Recovered/Resolved]
  - Mental impairment [Recovered/Resolved]
  - Headache [Recovered/Resolved]
  - Pain of skin [Recovered/Resolved]
